FAERS Safety Report 9735487 (Version 3)
Quarter: 2014Q2

REPORT INFORMATION
  Report Type: Spontaneous
  Country: US (occurrence: None)
  Receive Date: 20131205
  Receipt Date: 20140423
  Transmission Date: 20141212
  Serious: No
  Sender: FDA-Public Use
  Company Number: 2013CT000109

PATIENT
  Age: 41 Year
  Sex: Female
  Weight: 108 kg

DRUGS (8)
  1. KORLYM [Suspect]
     Indication: CUSHING^S SYNDROME
     Dosage: 4 TABLETS;QD;PO
     Route: 048
     Dates: start: 2012, end: 201304
  2. METFORMIN [Concomitant]
  3. GLIMEPIRIDE [Concomitant]
  4. LEVOTHYROXINE [Concomitant]
  5. SPIRONOLACTONE [Concomitant]
  6. LEVATOL [Concomitant]
  7. LABETALOL [Concomitant]
  8. ZOLPIDEM [Concomitant]

REACTIONS (10)
  - Vaginal haemorrhage [None]
  - Anal fissure [None]
  - Ovarian enlargement [None]
  - Vaginal discharge [None]
  - Ultrasound uterus abnormal [None]
  - Weight increased [None]
  - Pain [None]
  - Therapy cessation [None]
  - Bone density decreased [None]
  - Endometrial disorder [None]
